FAERS Safety Report 9555964 (Version 1)
Quarter: 2013Q3

REPORT INFORMATION
  Report Type: Spontaneous
  Country: TW (occurrence: TW)
  Receive Date: 20130926
  Receipt Date: 20130926
  Transmission Date: 20140515
  Serious: Yes (Life-Threatening, Hospitalization, Other)
  Sender: FDA-Public Use
  Company Number: TW-MILLENNIUM PHARMACEUTICALS, INC.-2013JNJ000350

PATIENT
  Sex: 0

DRUGS (11)
  1. VELCADE [Suspect]
     Indication: PLASMA CELL MYELOMA
     Dosage: 1.3 MG/M2, UNK
     Route: 058
     Dates: start: 20130426, end: 20130510
  2. DEXAMETHASONE [Suspect]
     Indication: PLASMA CELL MYELOMA
     Dosage: 20 MG, UNK
     Route: 048
     Dates: start: 20130426, end: 20130511
  3. SOLU-CORTEF [Concomitant]
     Indication: PROPHYLAXIS
     Dosage: UNK
     Dates: start: 20130510, end: 20130510
  4. DIPHENHYDRAMINE HYDROCHLORIDE [Concomitant]
     Indication: PROPHYLAXIS
     Dosage: UNK
     Dates: start: 20130510, end: 20130523
  5. OSELTAMIVIR PHOSPHATE [Concomitant]
     Dosage: UNK
     Dates: start: 20130514
  6. TAZOCIN [Concomitant]
     Dosage: UNK
     Dates: start: 20130514, end: 20130525
  7. TERBUTALINE SULPHATE [Concomitant]
     Dosage: UNK
     Dates: start: 20130514, end: 20130515
  8. UNASYN                             /00903601/ [Concomitant]
     Dosage: UNK
     Dates: start: 20130514, end: 20130514
  9. ACETYLCYSTEINE                     /00082802/ [Concomitant]
     Dosage: UNK
     Dates: start: 20130514, end: 20130523
  10. DEXTROSE [Concomitant]
     Dosage: UNK
     Dates: start: 20130514, end: 20130517
  11. FUROSEMIDE [Concomitant]
     Dosage: UNK
     Dates: start: 20130514, end: 20130521

REACTIONS (4)
  - Pneumonia [Recovered/Resolved]
  - Localised oedema [Recovered/Resolved]
  - Platelet count decreased [Recovering/Resolving]
  - Atrial fibrillation [Recovered/Resolved]
